FAERS Safety Report 8336028-9 (Version None)
Quarter: 2012Q2

REPORT INFORMATION
  Report Type: 
  Country: None (occurrence: None)
  Receive Date: 20120501
  Receipt Date: 20120501
  Transmission Date: 20120825
  Serious: Yes (Hospitalization)
  Sender: FDA-Public Use
  Company Number: None

PATIENT
  Age: 63 Year
  Sex: Female
  Weight: 72.8 kg

DRUGS (5)
  1. COZAAR [Suspect]
     Indication: HYPERTENSION
     Dosage: 25MG DAILY PO CHRONIC X 1 YR
     Route: 048
  2. PRILOSEC [Concomitant]
  3. GLUCOTROL [Concomitant]
  4. FERROUS SULFATE TAB [Concomitant]
  5. VITAMIN D [Concomitant]

REACTIONS (1)
  - ANGIOEDEMA [None]
